FAERS Safety Report 5062035-8 (Version None)
Quarter: 2006Q3

REPORT INFORMATION
  Report Type: 
  Country: None (occurrence: None)
  Receive Date: 20060719
  Receipt Date: 20060719
  Transmission Date: 20061208
  Serious: Yes (Hospitalization)
  Sender: FDA-Public Use
  Company Number: None

PATIENT

DRUGS (3)
  1. CEFTRIAXONE [Suspect]
  2. CEFUROXIME [Suspect]
  3. AZITHROMYCIN [Suspect]

REACTIONS (1)
  - CLOSTRIDIUM DIFFICILE COLITIS [None]
